FAERS Safety Report 8287198-2 (Version None)
Quarter: 2012Q2

REPORT INFORMATION
  Report Type: 
  Country: None (occurrence: None)
  Receive Date: 20120416
  Receipt Date: 20120405
  Transmission Date: 20120825
  Serious: Yes (Hospitalization, Other)
  Sender: FDA-Public Use
  Company Number: JP-ASTRAZENECA-2012SE13290

PATIENT
  Age: 73 Year
  Sex: Female
  Weight: 52 kg

DRUGS (4)
  1. CRESTOR [Suspect]
     Route: 048
     Dates: start: 20100624, end: 20101215
  2. CRESTOR [Suspect]
     Route: 048
     Dates: start: 20101216, end: 20110609
  3. CRESTOR [Suspect]
     Indication: HYPERLIPIDAEMIA
     Dosage: CRESTOR STOPPED WHEN CHOLESTEROL VALUE BECAME BETTER
     Route: 048
  4. CRESTOR [Suspect]
     Route: 048
     Dates: start: 20110610

REACTIONS (6)
  - OEDEMA [None]
  - SKIN TIGHTNESS [None]
  - TREMOR [None]
  - CYANOSIS [None]
  - FACE OEDEMA [None]
  - INTERSTITIAL LUNG DISEASE [None]
